FAERS Safety Report 4380717-8 (Version None)
Quarter: 2004Q2

REPORT INFORMATION
  Report Type: 
  Country: None (occurrence: None)
  Receive Date: 20040616
  Receipt Date: 20040608
  Transmission Date: 20050107
  Serious: Yes (Life-Threatening, Hospitalization)
  Sender: FDA-Public Use
  Company Number: 2004AP03075

PATIENT
  Age: 67 Year
  Sex: Female
  Weight: 50 kg

DRUGS (7)
  1. IRESSA [Suspect]
     Indication: BREAST CANCER METASTATIC
     Dosage: 250 MG DAILY PO
     Route: 048
     Dates: start: 20030909, end: 20040521
  2. EPIRUBICIN [Suspect]
     Indication: BREAST CANCER METASTATIC
     Dates: start: 20030909, end: 20040519
  3. RANITIDINE [Concomitant]
  4. LEVOTIROXINE [Concomitant]
  5. DIGOSIN [Concomitant]
  6. PROPAPHENONE [Concomitant]
  7. PREDNISONE [Concomitant]

REACTIONS (5)
  - ASTHENIA [None]
  - CARDIAC FAILURE ACUTE [None]
  - COUGH [None]
  - DYSPNOEA [None]
  - OEDEMA PERIPHERAL [None]
